FAERS Safety Report 9537472 (Version 1)
Quarter: 2013Q3

REPORT INFORMATION
  Report Type: Spontaneous
  Country: FR (occurrence: FR)
  Receive Date: 20130919
  Receipt Date: 20130919
  Transmission Date: 20140515
  Serious: Yes (Hospitalization)
  Sender: FDA-Public Use
  Company Number: FR-GLAXOSMITHKLINE-B0921683A

PATIENT
  Age: 45 Year
  Sex: Female

DRUGS (2)
  1. ARIXTRA [Suspect]
     Indication: THROMBOPHLEBITIS SUPERFICIAL
     Route: 065
     Dates: start: 201301, end: 201301
  2. XARELTO [Suspect]
     Indication: THROMBOPHLEBITIS SUPERFICIAL
     Route: 048
     Dates: start: 201302, end: 201303

REACTIONS (2)
  - Abdominal pain upper [Recovered/Resolved]
  - Asthenia [Recovered/Resolved]
